FAERS Safety Report 21845865 (Version 2)
Quarter: 2023Q1

REPORT INFORMATION
  Report Type: Report from Study
  Country: US (occurrence: None)
  Receive Date: 20230111
  Receipt Date: 20230207
  Transmission Date: 20230417
  Serious: Yes (Hospitalization)
  Sender: FDA-Public Use
  Company Number: US-ROCHE-3258355

PATIENT
  Age: 63 Year
  Sex: Male
  Weight: 62.1 kg

DRUGS (7)
  1. OBINUTUZUMAB [Suspect]
     Active Substance: OBINUTUZUMAB
     Indication: Chronic lymphocytic leukaemia
     Dosage: LAST ADMINISTERED DATE: 03/OCT/2022
     Route: 042
     Dates: start: 20220919, end: 20221003
  2. VENETOCLAX [Suspect]
     Active Substance: VENETOCLAX
     Indication: Chronic lymphocytic leukaemia
     Dosage: LAST ADMINISTRATION DATE: 12/OCT/2022
     Route: 048
     Dates: start: 20221010, end: 20221016
  3. DILTIAZEM [Concomitant]
     Active Substance: DILTIAZEM
  4. DIGOXIN [Concomitant]
     Active Substance: DIGOXIN
  5. METOPROLOL [Concomitant]
     Active Substance: METOPROLOL
  6. WARFARIN [Concomitant]
     Active Substance: WARFARIN
  7. METOPROLOL SUCCINATE [Concomitant]
     Active Substance: METOPROLOL SUCCINATE

REACTIONS (1)
  - Bradycardia [Recovered/Resolved]

NARRATIVE: CASE EVENT DATE: 20221012
